FAERS Safety Report 8849792 (Version 1)
Quarter: 2012Q4

REPORT INFORMATION
  Report Type: 
  Country: US (occurrence: US)
  Receive Date: 20121019
  Receipt Date: 20121019
  Transmission Date: 20130627
  Serious: Yes (Hospitalization)
  Sender: FDA-Public Use
  Company Number: US-BAYER-2012-107999

PATIENT
  Age: 40 Year
  Sex: Female
  Weight: 85.71 kg

DRUGS (5)
  1. YAZ [Suspect]
     Indication: CONTRACEPTION
     Dosage: UNK
     Dates: start: 200705, end: 200804
  2. SYNTHROID [Concomitant]
     Indication: HYPOTHYROIDISM
     Dosage: 0.112 mg, UNK
     Route: 048
     Dates: start: 1999
  3. SYNTHROID [Concomitant]
     Indication: THYROID DISORDER
  4. FERROUS SULFATE [Concomitant]
     Indication: ANAEMIA
     Route: 048
  5. CYCLOBENZAPRINE [Concomitant]
     Dosage: 5 mg, UNK
     Route: 048

REACTIONS (1)
  - Deep vein thrombosis [None]
